FAERS Safety Report 8843582 (Version 6)
Quarter: 2013Q1

REPORT INFORMATION
  Report Type: Spontaneous
  Country: US (occurrence: US)
  Receive Date: 20121016
  Receipt Date: 20130320
  Transmission Date: 20140127
  Serious: No
  Sender: FDA-Public Use
  Company Number: US-009507513-1210USA006143

PATIENT
  Sex: Female
  Weight: 63.49 kg

DRUGS (3)
  1. PEG-INTRON [Suspect]
     Indication: HEPATITIS C
     Dosage: UNK
     Dates: start: 20121005
  2. REBETOL [Suspect]
     Indication: HEPATITIS C
     Dosage: UNK
     Route: 048
     Dates: start: 20121005
  3. TELAPREVIR [Suspect]
     Indication: HEPATITIS C
     Dosage: UNK
     Dates: start: 20121005, end: 20130104

REACTIONS (17)
  - Haematochezia [Unknown]
  - Diarrhoea [Unknown]
  - Pain [Unknown]
  - Weight decreased [Unknown]
  - Diarrhoea [Unknown]
  - Haemorrhoids [Unknown]
  - Diarrhoea [Unknown]
  - Haemorrhoids [Unknown]
  - Constipation [Unknown]
  - Haemoglobin decreased [Unknown]
  - Anaemia [Unknown]
  - Myalgia [Unknown]
  - Cough [Unknown]
  - Myalgia [Unknown]
  - Epistaxis [Not Recovered/Not Resolved]
  - Anaemia [Unknown]
  - Haemoglobin decreased [Unknown]
